APPROVED DRUG PRODUCT: LIDOCAINE HYDROCHLORIDE
Active Ingredient: LIDOCAINE HYDROCHLORIDE
Strength: 4%
Dosage Form/Route: SOLUTION;TOPICAL
Application: A088803 | Product #001 | TE Code: AT
Applicant: HIKMA PHARMACEUTICALS USA INC
Approved: Apr 3, 1985 | RLD: No | RS: Yes | Type: RX